FAERS Safety Report 4946212-X (Version None)
Quarter: 2006Q1

REPORT INFORMATION
  Report Type: 
  Country: None (occurrence: None)
  Receive Date: 20060201
  Receipt Date: 20051218
  Transmission Date: 20060701
  Serious: No
  Sender: FDA-Public Use
  Company Number: 2005PV005995

PATIENT
  Age: 63 Year
  Sex: Female
  Weight: 70.3075 kg

DRUGS (6)
  1. BYETTA [Suspect]
     Indication: DIABETES MELLITUS NON-INSULIN-DEPENDENT
     Dosage: SEE IMAGE
     Route: 058
     Dates: start: 20050101, end: 20051209
  2. BYETTA [Suspect]
     Indication: DIABETES MELLITUS NON-INSULIN-DEPENDENT
     Dosage: SEE IMAGE
     Route: 058
     Dates: start: 20051210, end: 20051217
  3. BYETTA [Suspect]
     Indication: DIABETES MELLITUS NON-INSULIN-DEPENDENT
     Dosage: SEE IMAGE
     Route: 058
     Dates: start: 20051218, end: 20051219
  4. BYETTA [Suspect]
     Indication: DIABETES MELLITUS NON-INSULIN-DEPENDENT
     Dosage: SEE IMAGE
     Route: 058
     Dates: start: 20051220
  5. METFORMIN [Concomitant]
  6. LEVOXYL [Concomitant]

REACTIONS (11)
  - DECREASED APPETITE [None]
  - DRUG INEFFECTIVE [None]
  - EARLY SATIETY [None]
  - FATIGUE [None]
  - FEELING COLD [None]
  - HUNGER [None]
  - INCREASED APPETITE [None]
  - INJECTION SITE PAIN [None]
  - NAUSEA [None]
  - URINE ABNORMALITY [None]
  - WEIGHT DECREASED [None]
